FAERS Safety Report 24948492 (Version 1)
Quarter: 2025Q1

REPORT INFORMATION
  Report Type: Report from Study
  Country: CA (occurrence: CA)
  Receive Date: 20250210
  Receipt Date: 20250210
  Transmission Date: 20250409
  Serious: Yes (Hospitalization)
  Sender: ROCHE
  Company Number: CA-ROCHE-10000196131

PATIENT
  Sex: Female

DRUGS (1)
  1. OCREVUS [Suspect]
     Active Substance: OCRELIZUMAB
     Indication: Primary progressive multiple sclerosis
     Dosage: MORE DOSAGE INFORMATION IS 300 MG AT DAY 0 AND 14, THEN 600 MG EVERY 6 MONTHS
     Route: 042
     Dates: start: 20201106

REACTIONS (8)
  - Pneumonia [Unknown]
  - Off label use [Unknown]
  - Skin infection [Unknown]
  - COVID-19 [Unknown]
  - Dizziness [Unknown]
  - Back pain [Unknown]
  - Bone neoplasm [Not Recovered/Not Resolved]
  - Somnolence [Not Recovered/Not Resolved]
